FAERS Safety Report 8876532 (Version 1)
Quarter: 2012Q4

REPORT INFORMATION
  Report Type: 
  Country: US (occurrence: US)
  Receive Date: 20121023
  Receipt Date: 20121023
  Transmission Date: 20130627
  Serious: No
  Sender: FDA-Public Use
  Company Number: US-ASTELLAS-2012US004225

PATIENT
  Age: 60 Year
  Sex: Male
  Weight: 142 kg

DRUGS (16)
  1. PROGRAF [Suspect]
     Indication: LIVER TRANSPLANT
     Dosage: 3 mg in morning, 4 mg in evening
     Route: 048
     Dates: start: 20080412
  2. CELLCEPT [Concomitant]
     Indication: LIVER TRANSPLANT
     Dosage: 500 mg, bid
     Route: 048
     Dates: start: 20080412
  3. IRON [Concomitant]
     Indication: BLOOD IRON DECREASED
     Dosage: 325 mg, UID/QD
     Route: 048
  4. ALLOPURINOL [Concomitant]
     Indication: PRODUCT USED FOR UNKNOWN INDICATION
     Dosage: 100 mg, UID/QD
     Route: 048
  5. NORTRIPTYLINE [Concomitant]
     Indication: PRODUCT USED FOR UNKNOWN INDICATION
     Dosage: 10 mg, UID/QD
     Route: 048
  6. FLUCONAZOLE [Concomitant]
     Indication: PRODUCT USED FOR UNKNOWN INDICATION
     Dosage: 100 mg, UID/QD
     Route: 048
  7. GABAPENTIN [Concomitant]
     Indication: PAIN IN EXTREMITY
     Dosage: 100 mg, tid
     Route: 048
  8. NEXIUM [Concomitant]
     Indication: GASTROOESOPHAGEAL REFLUX DISEASE
     Dosage: 40 mg, UID/QD
     Route: 048
  9. AMLODIPINE [Concomitant]
     Indication: PRODUCT USED FOR UNKNOWN INDICATION
     Dosage: 5 mg, UID/QD
     Route: 048
  10. FUROSEMIDE [Concomitant]
     Indication: FLUID RETENTION
     Dosage: 80 mg in morning, 40 mg in evening
     Route: 048
  11. CRESTOR [Concomitant]
     Indication: BLOOD CHOLESTEROL
     Dosage: 20 mg, UID/QD
     Route: 048
  12. METOPROLOL [Concomitant]
     Indication: HYPERTENSION
     Dosage: 200 mg, UID/QD
     Route: 048
  13. CENTRUM [Concomitant]
     Indication: VITAMIN SUPPLEMENTATION
     Dosage: UNK
     Route: 048
  14. ASPIRIN [Concomitant]
     Indication: CARDIOVASCULAR EVENT PROPHYLAXIS
     Dosage: 81 mg, UID/QD
     Route: 048
  15. NOVOLOG [Concomitant]
     Indication: DIABETES MELLITUS
     Dosage: 70 U, bid
     Route: 058
  16. NOVOLOG [Concomitant]
     Dosage: 28 U, UID/QD
     Route: 058

REACTIONS (1)
  - Herpes zoster [Unknown]
